FAERS Safety Report 6383206-4 (Version None)
Quarter: 2009Q3

REPORT INFORMATION
  Report Type: 
  Country: None (occurrence: None)
  Receive Date: 20090929
  Receipt Date: 20090915
  Transmission Date: 20100115
  Serious: Yes (Hospitalization)
  Sender: FDA-Public Use
  Company Number: US-1170791

PATIENT
  Sex: Female
  Weight: 64.4108 kg

DRUGS (3)
  1. TIMOLOL MALEATE [Suspect]
     Indication: GLAUCOMA
     Dosage: (OPHTHALMIC)
     Route: 047
     Dates: start: 20090724, end: 20090902
  2. XALATAN [Concomitant]
  3. PULMICORT [Concomitant]

REACTIONS (6)
  - BLOOD PRESSURE ABNORMAL [None]
  - FATIGUE [None]
  - HEART RATE IRREGULAR [None]
  - METAMORPHOPSIA [None]
  - PALPITATIONS [None]
  - VISION BLURRED [None]
